FAERS Safety Report 5139282-X (Version None)
Quarter: 2006Q4

REPORT INFORMATION
  Report Type: 
  Country: None (occurrence: None)
  Receive Date: 20061024
  Receipt Date: 20061011
  Transmission Date: 20070319
  Serious: Yes (Hospitalization)
  Sender: FDA-Public Use
  Company Number: 2006BI012695

PATIENT
  Age: 49 Year
  Sex: Male

DRUGS (6)
  1. AVONEX [Suspect]
     Indication: MULTIPLE SCLEROSIS
     Dosage: 30 UG;QW;IM
     Route: 030
     Dates: start: 20010101
  2. AVONEX [Suspect]
     Indication: MULTIPLE SCLEROSIS
     Dosage: 30 UG;QW;IM
     Route: 030
  3. OXYBUTININ [Concomitant]
  4. GABAPENTIN [Concomitant]
  5. POTASSIUM CHLORIDE [Concomitant]
  6. BACLOFEN [Concomitant]

REACTIONS (2)
  - ATELECTASIS [None]
  - BILIARY TRACT INFECTION [None]
